FAERS Safety Report 25853936 (Version 2)
Quarter: 2025Q4

REPORT INFORMATION
  Report Type: Report from Study
  Country: EU (occurrence: EU)
  Receive Date: 20250926
  Receipt Date: 20251107
  Transmission Date: 20260117
  Serious: Yes (Other)
  Sender: ALEXION PHARMACEUTICALS
  Company Number: EU-ASTRAZENECA-202509GLO017870FR

PATIENT
  Age: 10 Year
  Sex: Female
  Weight: 28 kg

DRUGS (4)
  1. SELUMETINIB [Suspect]
     Active Substance: SELUMETINIB
     Dosage: 25 MILLIGRAM, BID
     Route: 065
     Dates: start: 20250416
  2. SELUMETINIB [Suspect]
     Active Substance: SELUMETINIB
     Dosage: 15 MILLIGRAM, BID
     Route: 065
     Dates: start: 20250416
  3. RACECADOTRIL [Concomitant]
     Active Substance: RACECADOTRIL
     Indication: Diarrhoea
     Dosage: 30 MILLIGRAM, TID
     Dates: start: 20250416
  4. Spasfon [Concomitant]
     Indication: Abdominal pain
     Dosage: 80 GRAM, TID
     Dates: start: 20250416

REACTIONS (1)
  - Hepatic cytolysis [Not Recovered/Not Resolved]

NARRATIVE: CASE EVENT DATE: 20250715
